FAERS Safety Report 5919176-X (Version None)
Quarter: 2008Q4

REPORT INFORMATION
  Report Type: 
  Country: None (occurrence: None)
  Receive Date: 20081015
  Receipt Date: 20081008
  Transmission Date: 20090506
  Serious: Yes (Hospitalization)
  Sender: FDA-Public Use
  Company Number: US-MERCK-0810USA01724

PATIENT
  Sex: Male

DRUGS (3)
  1. MEVACOR [Suspect]
     Route: 048
  2. GEMFIBROZIL [Concomitant]
     Route: 065
  3. NIASPAN [Concomitant]
     Route: 065

REACTIONS (2)
  - CARDIAC FAILURE CONGESTIVE [None]
  - RHABDOMYOLYSIS [None]
